FAERS Safety Report 23810922 (Version 1)
Quarter: 2024Q2

REPORT INFORMATION
  Report Type: Spontaneous
  Country: US (occurrence: US)
  Receive Date: 20240502
  Receipt Date: 20240502
  Transmission Date: 20240716
  Serious: Yes (Hospitalization)
  Sender: FDA-Public Use
  Company Number: US-MYLANLABS-2024M1038777

PATIENT
  Age: 14 Year
  Sex: Female

DRUGS (2)
  1. TRANEXAMIC ACID [Suspect]
     Active Substance: TRANEXAMIC ACID
     Indication: Heavy menstrual bleeding
     Dosage: UNK
     Route: 065
  2. ESTROGEN NOS [Suspect]
     Active Substance: ESTROGENS
     Indication: Heavy menstrual bleeding
     Dosage: UNK
     Route: 042

REACTIONS (1)
  - Drug ineffective [Unknown]
